FAERS Safety Report 13678377 (Version 2)
Quarter: 2017Q2

REPORT INFORMATION
  Report Type: Spontaneous
  Country: US (occurrence: US)
  Receive Date: 20170622
  Receipt Date: 20170627
  Transmission Date: 20170830
  Serious: Yes (Hospitalization, Other)
  Sender: FDA-Public Use
  Company Number: US-PFIZER INC-2017244096

PATIENT
  Age: 79 Year
  Sex: Female

DRUGS (4)
  1. IBRANCE [Suspect]
     Active Substance: PALBOCICLIB
     Indication: BREAST CANCER
     Dosage: 125 MG, UNK
  2. FASLODEX [Concomitant]
     Active Substance: FULVESTRANT
     Dosage: 2 SHOTS PER MONTH
     Route: 030
  3. FASLODEX [Concomitant]
     Active Substance: FULVESTRANT
     Dosage: UNK [A DOUBLE SHOT, 1 SHOT IN EACH BUTT CHEEK]
     Route: 030
  4. IBRANCE [Suspect]
     Active Substance: PALBOCICLIB
     Dosage: 10 MG, 1X/DAY
     Dates: start: 201612

REACTIONS (6)
  - Red blood cell count decreased [Unknown]
  - White blood cell count decreased [Unknown]
  - Cough [Unknown]
  - Urinary tract infection [Recovered/Resolved]
  - Pulmonary oedema [Unknown]
  - Confusional state [Recovered/Resolved]
